FAERS Safety Report 10911278 (Version 11)
Quarter: 2016Q1

REPORT INFORMATION
  Report Type: Report from Study
  Country: CA (occurrence: CA)
  Receive Date: 20150312
  Receipt Date: 20160214
  Transmission Date: 20160525
  Serious: Yes (Hospitalization, Other)
  Sender: FDA-Public Use
  Company Number: PHHY2013CA139837

PATIENT
  Age: 57 Year
  Sex: Female

DRUGS (2)
  1. SANDOSTATIN [Suspect]
     Active Substance: OCTREOTIDE ACETATE
     Indication: ILEOSTOMY
     Dosage: 100 UG, TID
     Route: 058
     Dates: start: 20130808, end: 20130915
  2. SANDOSTATIN LAR DEPOT [Suspect]
     Active Substance: OCTREOTIDE ACETATE
     Indication: ILEOSTOMY
     Dosage: 30 MG, QMO (ONCE A MONTH)
     Route: 030
     Dates: start: 20130831

REACTIONS (23)
  - Catheter site infection [Unknown]
  - Pyrexia [Unknown]
  - Lung neoplasm malignant [Unknown]
  - Oropharyngeal candidiasis [Unknown]
  - Fatigue [Unknown]
  - Bronchitis [Unknown]
  - Bacterial test positive [Unknown]
  - Fungal infection [Unknown]
  - Blood pressure systolic increased [Unknown]
  - Malaise [Unknown]
  - Dehydration [Unknown]
  - Vomiting [Unknown]
  - Body temperature decreased [Unknown]
  - Cough [Unknown]
  - Diarrhoea [Unknown]
  - Intestinal obstruction [Unknown]
  - Pain [Unknown]
  - Product use issue [Unknown]
  - Oral candidiasis [Unknown]
  - Painful respiration [Unknown]
  - Gastrointestinal candidiasis [Unknown]
  - Pulmonary congestion [Unknown]
  - Dyspnoea [Unknown]

NARRATIVE: CASE EVENT DATE: 20140127
